FAERS Safety Report 8823600 (Version 2)
Quarter: 2012Q4

REPORT INFORMATION
  Report Type: 
  Country: US (occurrence: US)
  Receive Date: 20121003
  Receipt Date: 20121019
  Transmission Date: 20130627
  Serious: Yes (Other)
  Sender: FDA-Public Use
  Company Number: CHPA2012US020475

PATIENT
  Age: 84 Year
  Sex: Female

DRUGS (2)
  1. MYOFLEX ANALGESIC CREME [Suspect]
     Indication: SPINAL COLUMN STENOSIS
     Dosage: Unk, PRN
     Route: 061
     Dates: start: 1987
  2. MYOFLEX ANALGESIC CREME [Suspect]
     Dosage: Unk, AT LEAST EVERY NIGHT IN THE COLD
     Route: 061
     Dates: start: 1987

REACTIONS (4)
  - Spinal column stenosis [Recovered/Resolved]
  - Back pain [Not Recovered/Not Resolved]
  - Arthralgia [Not Recovered/Not Resolved]
  - Off label use [Unknown]
